FAERS Safety Report 14496404 (Version 1)
Quarter: 2018Q1

REPORT INFORMATION
  Report Type: Spontaneous
  Country: US (occurrence: US)
  Receive Date: 20180207
  Receipt Date: 20180207
  Transmission Date: 20180509
  Serious: Yes (Other)
  Sender: FDA-Public Use
  Company Number: US-009507513-1802USA000144

PATIENT
  Age: 36 Year
  Sex: Male

DRUGS (2)
  1. PROVENTIL [Concomitant]
     Active Substance: ALBUTEROL
     Dosage: UNK
  2. DULERA [Suspect]
     Active Substance: FORMOTEROL FUMARATE DIHYDRATE\MOMETASONE FUROATE
     Indication: ASTHMA
     Dosage: UNK
     Route: 055
     Dates: start: 201711

REACTIONS (5)
  - Incorrect dose administered [Unknown]
  - Drug ineffective [Unknown]
  - Adverse event [Unknown]
  - Depression suicidal [Not Recovered/Not Resolved]
  - Abnormal behaviour [Not Recovered/Not Resolved]

NARRATIVE: CASE EVENT DATE: 201711
